FAERS Safety Report 18880375 (Version 2)
Quarter: 2021Q1

REPORT INFORMATION
  Report Type: Spontaneous
  Country: US (occurrence: US)
  Receive Date: 20210211
  Receipt Date: 20210222
  Transmission Date: 20210420
  Serious: Yes (Death)
  Sender: FDA-Public Use
  Company Number: US-ABBVIE-21K-163-3770625-00

PATIENT
  Age: 89 Year
  Sex: Male
  Weight: 83 kg

DRUGS (3)
  1. IMBRUVICA [Suspect]
     Active Substance: IBRUTINIB
     Indication: BLOOD VISCOSITY INCREASED
  2. IMBRUVICA [Suspect]
     Active Substance: IBRUTINIB
     Indication: ANAEMIA
     Route: 048
     Dates: start: 20190726
  3. IMBRUVICA [Suspect]
     Active Substance: IBRUTINIB
     Indication: BLOOD IMMUNOGLOBULIN M INCREASED
     Route: 048
     Dates: start: 201906

REACTIONS (2)
  - COVID-19 [Unknown]
  - Death [Fatal]

NARRATIVE: CASE EVENT DATE: 20210127
